FAERS Safety Report 10759798 (Version 4)
Quarter: 2015Q2

REPORT INFORMATION
  Report Type: Report from Study
  Country: DE (occurrence: DE)
  Receive Date: 20150203
  Receipt Date: 20150426
  Transmission Date: 20150821
  Serious: Yes (Hospitalization)
  Sender: FDA-Public Use
  Company Number: PHHY2015DE011550

PATIENT
  Sex: Male
  Weight: 59 kg

DRUGS (4)
  1. ICL670A [Suspect]
     Active Substance: DEFERASIROX
     Dosage: 500 MG, QD
     Route: 048
     Dates: start: 20141229, end: 20150104
  2. ICL670A [Suspect]
     Active Substance: DEFERASIROX
     Dosage: 500 MG, QD
     Route: 048
     Dates: start: 20150120, end: 20150126
  3. ICL670A [Suspect]
     Active Substance: DEFERASIROX
     Indication: MYELOFIBROSIS
     Dosage: 1000 MG, QD (2X500 MG)
     Route: 048
     Dates: start: 20141223, end: 20141228
  4. ICL670A [Suspect]
     Active Substance: DEFERASIROX
     Dosage: 1000 MG, QD (2X500 MG)
     Route: 048
     Dates: start: 20150105, end: 20150119

REACTIONS (4)
  - General physical health deterioration [Not Recovered/Not Resolved]
  - Diarrhoea [Recovered/Resolved]
  - Stomatitis [Recovered/Resolved]
  - Diarrhoea [Recovered/Resolved]

NARRATIVE: CASE EVENT DATE: 20141229
